FAERS Safety Report 5143115-5 (Version None)
Quarter: 2006Q4

REPORT INFORMATION
  Report Type: 
  Country: None (occurrence: None)
  Receive Date: 20061103
  Receipt Date: 20061030
  Transmission Date: 20070319
  Serious: Yes (Hospitalization)
  Sender: FDA-Public Use
  Company Number: FR-BRISTOL-MYERS SQUIBB COMPANY-13561444

PATIENT
  Age: 40 Year
  Sex: Male

DRUGS (6)
  1. VIDEX [Suspect]
     Route: 048
     Dates: start: 19980804, end: 20030619
  2. ZERIT [Suspect]
     Route: 048
     Dates: start: 19980804, end: 20030617
  3. BACTRIM [Suspect]
     Route: 048
     Dates: start: 19961015
  4. MACROLIN [Suspect]
     Route: 042
     Dates: start: 20001016, end: 20021029
  5. KALETRA [Suspect]
     Route: 048
     Dates: start: 20011117, end: 20030617
  6. TRIZIVIR [Suspect]
     Route: 048
     Dates: start: 20030617

REACTIONS (1)
  - NON-HODGKIN'S LYMPHOMA [None]
